FAERS Safety Report 8082291-1 (Version None)
Quarter: 2012Q1

REPORT INFORMATION
  Report Type: 
  Country: None (occurrence: None)
  Receive Date: 20120127
  Receipt Date: 20110214
  Transmission Date: 20120608
  Serious: No
  Sender: FDA-Public Use
  Company Number: US-ABBOTT-11P-163-0705556-00

PATIENT
  Age: 47 Year
  Sex: Female

DRUGS (4)
  1. HUMIRA [Suspect]
     Indication: ANKYLOSING SPONDYLITIS
     Dates: start: 20101230
  2. FISH OIL [Concomitant]
     Indication: PRODUCT USED FOR UNKNOWN INDICATION
  3. LEFLUNOMIDE [Concomitant]
     Indication: PRODUCT USED FOR UNKNOWN INDICATION
     Dosage: HAS BEEN OFF ONE WEEK AS THE PHARMACY IS OUT OF THIS MED CURRENTLY
  4. UNA DE GATO HERB [Concomitant]
     Indication: IMMUNE SYSTEM DISORDER
     Dosage: 2 TABLE SPOONS

REACTIONS (1)
  - PAIN [None]
